FAERS Safety Report 24745130 (Version 1)
Quarter: 2024Q4

REPORT INFORMATION
  Report Type: Other
  Country: FR (occurrence: FR)
  Receive Date: 20241217
  Receipt Date: 20241217
  Transmission Date: 20250115
  Serious: Yes (Life-Threatening, Hospitalization)
  Sender: AIRGAS
  Company Number: IE-MLMSERVICE-20241129-PI262751-00253-1

PATIENT

DRUGS (2)
  1. OXYGEN [Suspect]
     Active Substance: OXYGEN
     Indication: Hypoxia
  2. ALBUTEROL [Concomitant]
     Active Substance: ALBUTEROL

REACTIONS (2)
  - Respiratory acidosis [Unknown]
  - Respiratory failure [Recovered/Resolved]
